FAERS Safety Report 10511643 (Version 1)
Quarter: 2014Q4

REPORT INFORMATION
  Report Type: Spontaneous
  Country: GB (occurrence: GB)
  Receive Date: 20141010
  Receipt Date: 20141010
  Transmission Date: 20150528
  Serious: Yes (Hospitalization)
  Sender: FDA-Public Use
  Company Number: GB-WATSON-2014-21609

PATIENT
  Age: 51 Year
  Sex: Male
  Weight: 92 kg

DRUGS (5)
  1. ATENOLOL (UNKNOWN) [Suspect]
     Active Substance: ATENOLOL
     Indication: ANGINA PECTORIS
     Dosage: 50 MG, DAILY
     Route: 048
     Dates: start: 20101118, end: 20140601
  2. SIMVASTATIN. [Concomitant]
     Active Substance: SIMVASTATIN
     Indication: PRODUCT USED FOR UNKNOWN INDICATION
     Dosage: UNK
     Route: 065
  3. PERINDOPRIL [Concomitant]
     Active Substance: PERINDOPRIL
     Indication: PRODUCT USED FOR UNKNOWN INDICATION
     Dosage: UNK
     Route: 065
  4. FLUOXETINE [Interacting]
     Active Substance: FLUOXETINE\FLUOXETINE HYDROCHLORIDE
     Indication: DEPRESSION
     Dosage: 40 MG, DAILY
     Route: 048
     Dates: start: 20140317, end: 20140601
  5. AMISULPRID [Concomitant]
     Active Substance: AMISULPRIDE
     Indication: PRODUCT USED FOR UNKNOWN INDICATION
     Dosage: UNK
     Route: 065

REACTIONS (3)
  - Loss of consciousness [Recovering/Resolving]
  - Drug interaction [Unknown]
  - Bradycardia [Recovering/Resolving]

NARRATIVE: CASE EVENT DATE: 20140331
